FAERS Safety Report 6727753-1 (Version None)
Quarter: 2010Q2

REPORT INFORMATION
  Report Type: 
  Country: None (occurrence: None)
  Receive Date: 20100512
  Receipt Date: 20100429
  Transmission Date: 20101027
  Serious: Yes (Other)
  Sender: FDA-Public Use
  Company Number: CO-JNJFOC-20100501195

PATIENT
  Sex: Female

DRUGS (1)
  1. DACOGEN [Suspect]
     Indication: MYELODYSPLASTIC SYNDROME
     Dosage: 20 MG/M2 INTRAVENOUS
     Route: 042
     Dates: start: 20091201, end: 20100301

REACTIONS (3)
  - NEUTROPENIA [None]
  - PANCYTOPENIA [None]
  - PHLEBITIS [None]
